FAERS Safety Report 6165880-0 (Version None)
Quarter: 2009Q2

REPORT INFORMATION
  Report Type: 
  Country: None (occurrence: None)
  Receive Date: 20090423
  Receipt Date: 20090410
  Transmission Date: 20091009
  Serious: Yes (Death, Hospitalization)
  Sender: FDA-Public Use
  Company Number: GR-MERCK-0904GRC00003

PATIENT
  Age: 81 Year
  Sex: Female

DRUGS (5)
  1. PRIMAXIN [Suspect]
     Indication: PNEUMONIA
     Route: 051
  2. SULTAMICILLIN [Concomitant]
     Indication: PNEUMONIA
     Route: 065
  3. CLINDAMYCIN [Concomitant]
     Indication: PNEUMONIA
     Route: 065
  4. CIPROFLOXACIN [Concomitant]
     Indication: PNEUMONIA
     Route: 065
  5. VIBRAMYCIN [Concomitant]
     Indication: PNEUMONIA
     Route: 065

REACTIONS (1)
  - TREATMENT FAILURE [None]
